FAERS Safety Report 6386447-5 (Version None)
Quarter: 2009Q4

REPORT INFORMATION
  Report Type: 
  Country: None (occurrence: None)
  Receive Date: 20091002
  Receipt Date: 20090714
  Transmission Date: 20100525
  Serious: No
  Sender: FDA-Public Use
  Company Number: US-ASTRAZENECA-2009UW11205

PATIENT
  Age: 892 Month
  Sex: Female
  Weight: 63.5 kg

DRUGS (7)
  1. ARIMIDEX [Suspect]
     Indication: BREAST CANCER
     Route: 048
     Dates: start: 20070701
  2. COUMADIN [Concomitant]
  3. CARTIA XT [Concomitant]
  4. NADOLOL [Concomitant]
  5. LESCOL XL [Concomitant]
  6. CALCIUM [Concomitant]
  7. HYDROCHLOROTHIAZIDE [Concomitant]

REACTIONS (1)
  - BREAST ENLARGEMENT [None]
